FAERS Safety Report 7777088-3 (Version None)
Quarter: 2011Q3

REPORT INFORMATION
  Report Type: 
  Country: None (occurrence: None)
  Receive Date: 20110926
  Receipt Date: 20110914
  Transmission Date: 20111222
  Serious: Yes (Other)
  Sender: FDA-Public Use
  Company Number: JP-SANOFI-AVENTIS-2010SA032178

PATIENT
  Age: 75 Year
  Sex: Female

DRUGS (19)
  1. DEXAMETHASONE SODIUM PHOSPHATE [Concomitant]
     Dates: start: 20091112
  2. MAGNESIUM SULFATE [Concomitant]
  3. XELODA [Suspect]
     Indication: COLON CANCER
     Route: 048
     Dates: start: 20091112, end: 20091112
  4. XELODA [Suspect]
     Route: 048
     Dates: start: 20100201, end: 20100201
  5. AVASTIN [Suspect]
     Indication: COLON CANCER
     Dosage: DOSE: 7.5 MG/KG (300 MG)
     Route: 041
     Dates: start: 20091204, end: 20091204
  6. AVASTIN [Suspect]
     Route: 041
     Dates: end: 20100201
  7. PURSENNID /SCH/ [Concomitant]
     Dates: start: 20091109
  8. RABEPRAZOLE SODIUM [Concomitant]
     Dates: start: 20091030
  9. FOIPAN [Concomitant]
     Dates: start: 20091208
  10. OXALIPLATIN [Suspect]
     Route: 041
     Dates: start: 20100101
  11. OXALIPLATIN [Suspect]
     Route: 041
  12. XELODA [Suspect]
     Route: 048
  13. OXALIPLATIN [Suspect]
     Indication: COLON CANCER
     Route: 041
     Dates: start: 20091112, end: 20091112
  14. CYANOCOBALAMIN/PYRIDOXINE HYDROCHLORIDE/THIAMINE DISULFIDE [Concomitant]
     Dates: start: 20091112, end: 20100423
  15. OXALIPLATIN [Suspect]
     Route: 041
     Dates: start: 20100219, end: 20100219
  16. XELODA [Suspect]
     Route: 048
     Dates: start: 20100101
  17. XELODA [Suspect]
     Route: 048
     Dates: end: 20100423
  18. AVASTIN [Suspect]
     Route: 041
     Dates: start: 20100409, end: 20100409
  19. RAMELTEON [Concomitant]
     Dates: start: 20091112

REACTIONS (6)
  - DECREASED APPETITE [None]
  - KERATITIS [None]
  - PALMAR-PLANTAR ERYTHRODYSAESTHESIA SYNDROME [None]
  - NAUSEA [None]
  - MALAISE [None]
  - PANCREATIC ENZYMES INCREASED [None]
